FAERS Safety Report 7110637-7 (Version None)
Quarter: 2010Q4

REPORT INFORMATION
  Report Type: 
  Country: None (occurrence: None)
  Receive Date: 20101118
  Receipt Date: 20101113
  Transmission Date: 20110411
  Serious: Yes (Hospitalization, Other)
  Sender: FDA-Public Use
  Company Number: CN-ROCHE-741299

PATIENT
  Age: 33 Month
  Sex: Male

DRUGS (4)
  1. ROCEPHIN [Suspect]
     Indication: PNEUMONIA
     Route: 041
     Dates: start: 20100905
  2. CEFTRIAXONE (NON-ROCHE/NON-COMPARATOR) [Suspect]
     Indication: PNEUMONIA
     Dosage: THE TRADE NAME WAS REPORTED AS CEFIN (FANSHENGSHUFU).
     Route: 041
     Dates: start: 20101105, end: 20101105
  3. MOROXYDINE [Concomitant]
  4. AZITHROMYCIN [Concomitant]
     Indication: PNEUMONIA
     Dates: start: 20101105

REACTIONS (3)
  - DRUG HYPERSENSITIVITY [None]
  - PNEUMONIA [None]
  - VIRAL INFECTION [None]
